FAERS Safety Report 21445201 (Version 1)
Quarter: 2022Q4

REPORT INFORMATION
  Report Type: Spontaneous
  Country: US (occurrence: None)
  Receive Date: 20221010
  Receipt Date: 20221010
  Transmission Date: 20230113
  Serious: Yes (Hospitalization)
  Sender: FDA-Public Use
  Company Number: None

PATIENT
  Age: 55 Year
  Sex: Male

DRUGS (1)
  1. SORAFENIB [Suspect]
     Active Substance: SORAFENIB
     Dosage: 400MG BID ORAL?
     Route: 048
     Dates: start: 202204

REACTIONS (3)
  - Fluid retention [None]
  - Swelling [None]
  - Tremor [None]

NARRATIVE: CASE EVENT DATE: 20221004
